FAERS Safety Report 14314518 (Version 2)
Quarter: 2018Q1

REPORT INFORMATION
  Report Type: Spontaneous
  Country: PL (occurrence: PL)
  Receive Date: 20171221
  Receipt Date: 20180215
  Transmission Date: 20180509
  Serious: Yes (Other)
  Sender: FDA-Public Use
  Company Number: PL-EMD SERONO-9003615

PATIENT
  Age: 23 Year
  Sex: Male

DRUGS (3)
  1. REBIF [Suspect]
     Active Substance: INTERFERON BETA-1A
     Indication: PRODUCT USED FOR UNKNOWN INDICATION
     Dates: start: 20131212
  2. REBIF [Suspect]
     Active Substance: INTERFERON BETA-1A
     Dates: start: 20170217, end: 20171129
  3. REBIF [Suspect]
     Active Substance: INTERFERON BETA-1A
     Dates: start: 20161213, end: 20170203

REACTIONS (3)
  - Aspartate aminotransferase increased [Recovered/Resolved with Sequelae]
  - Alanine aminotransferase increased [Recovered/Resolved with Sequelae]
  - Asthma [Unknown]

NARRATIVE: CASE EVENT DATE: 2017
